FAERS Safety Report 7835181-0 (Version None)
Quarter: 2011Q4

REPORT INFORMATION
  Report Type: 
  Country: None (occurrence: None)
  Receive Date: 20111024
  Receipt Date: 20111021
  Transmission Date: 20120403
  Serious: Yes (Death)
  Sender: FDA-Public Use
  Company Number: CHPA2011US14649

PATIENT
  Age: 92 Year
  Sex: Female

DRUGS (1)
  1. MYOFLEX ANALGESIC CREME [Suspect]
     Indication: ARTHRALGIA
     Dosage: UNK DF, UNK
     Route: 061

REACTIONS (1)
  - NEOPLASM MALIGNANT [None]
